FAERS Safety Report 7253253-9 (Version None)
Quarter: 2011Q1

REPORT INFORMATION
  Report Type: 
  Country: None (occurrence: None)
  Receive Date: 20110129
  Receipt Date: 20100219
  Transmission Date: 20110831
  Serious: No
  Sender: FDA-Public Use
  Company Number: US-ABBOTT-10P-163-0627827-00

PATIENT
  Sex: Female
  Weight: 61.29 kg

DRUGS (3)
  1. PREDNISONE [Concomitant]
     Indication: PSORIATIC ARTHROPATHY
  2. HUMIRA [Suspect]
     Indication: PSORIATIC ARTHROPATHY
     Dates: start: 20090301
  3. ETOTALAC [Concomitant]
     Indication: PSORIATIC ARTHROPATHY

REACTIONS (5)
  - POOR QUALITY SLEEP [None]
  - INJECTION SITE PAIN [None]
  - POOR QUALITY DRUG ADMINISTERED [None]
  - INJECTION SITE RASH [None]
  - INCORRECT STORAGE OF DRUG [None]
